FAERS Safety Report 8020609-6 (Version None)
Quarter: 2012Q1

REPORT INFORMATION
  Report Type: 
  Country: None (occurrence: None)
  Receive Date: 20120103
  Receipt Date: 20111228
  Transmission Date: 20120608
  Serious: Yes (Life-Threatening, Hospitalization, Other)
  Sender: FDA-Public Use
  Company Number: US-ASTRAZENECA-2011SE52285

PATIENT
  Age: 63 Year
  Sex: Female

DRUGS (11)
  1. ATACAND [Suspect]
     Route: 048
     Dates: start: 20101220
  2. DUONEB [Concomitant]
     Dosage: NEBULIZER QID
  3. VENTOLIN [Concomitant]
     Dosage: NEBULIZER EVERY TWO HOURS PRN
  4. HUMULIN R [Concomitant]
  5. PRAVACHOL [Concomitant]
     Route: 048
  6. LOVENOX [Concomitant]
     Route: 058
  7. ASPIRIN [Concomitant]
  8. LANTUS [Concomitant]
     Route: 058
  9. LEVAQUIN [Concomitant]
     Dates: end: 20101106
  10. ATACAND [Suspect]
     Indication: HYPERTENSION
     Dosage: 32/25 MGS
     Route: 048
     Dates: start: 20090721, end: 20101220
  11. CELEXA [Concomitant]

REACTIONS (9)
  - METABOLIC ENCEPHALOPATHY [None]
  - VISUAL IMPAIRMENT [None]
  - DEHYDRATION [None]
  - CEREBROVASCULAR DISORDER [None]
  - GAIT DISTURBANCE [None]
  - ACTIVITIES OF DAILY LIVING IMPAIRED [None]
  - RENAL INJURY [None]
  - HEMIPARESIS [None]
  - URINARY TRACT INFECTION [None]
